FAERS Safety Report 23958823 (Version 4)
Quarter: 2024Q3

REPORT INFORMATION
  Report Type: Report from Study
  Country: US (occurrence: US)
  Receive Date: 20240611
  Receipt Date: 20240823
  Transmission Date: 20241017
  Serious: No
  Sender: ALEXION PHARMACEUTICALS
  Company Number: US-AstraZeneca-CH-00639616A

PATIENT
  Sex: Male

DRUGS (2)
  1. ULTOMIRIS [Suspect]
     Active Substance: RAVULIZUMAB-CWVZ
     Indication: Myasthenia gravis
     Dosage: UNK
     Route: 065
     Dates: start: 20231003
  2. MESTINON [Concomitant]
     Active Substance: PYRIDOSTIGMINE BROMIDE
     Indication: Product used for unknown indication
     Dosage: UNK
     Route: 065

REACTIONS (9)
  - Eyelid oedema [Not Recovered/Not Resolved]
  - Neck pain [Unknown]
  - Diplopia [Not Recovered/Not Resolved]
  - Asthenopia [Unknown]
  - Muscular weakness [Unknown]
  - Eyelid ptosis [Unknown]
  - Photophobia [Unknown]
  - Visual impairment [Unknown]
  - Vision blurred [Unknown]
